FAERS Safety Report 6723153-9 (Version None)
Quarter: 2010Q2

REPORT INFORMATION
  Report Type: 
  Country: None (occurrence: None)
  Receive Date: 20100512
  Receipt Date: 20100512
  Transmission Date: 20101027
  Serious: Yes (Hospitalization, Other)
  Sender: FDA-Public Use
  Company Number: None

PATIENT
  Sex: Male
  Weight: 107.9561 kg

DRUGS (1)
  1. FENTANYL [Suspect]
     Indication: PAIN
     Dosage: 50 MCG EVERY 48 HRS PATCH
     Dates: start: 20100201, end: 20100411

REACTIONS (4)
  - BRONCHITIS [None]
  - DEVICE LEAKAGE [None]
  - DYSARTHRIA [None]
  - WRONG TECHNIQUE IN DRUG USAGE PROCESS [None]
